FAERS Safety Report 10775651 (Version 1)
Quarter: 2015Q1

REPORT INFORMATION
  Report Type: Spontaneous
  Country: US (occurrence: US)
  Receive Date: 20150209
  Receipt Date: 20150209
  Transmission Date: 20150721
  Serious: No
  Sender: FDA-Public Use
  Company Number: US-009507513-1502USA003419

PATIENT
  Age: 26 Year
  Sex: Female
  Weight: 70.75 kg

DRUGS (1)
  1. NEXPLANON [Suspect]
     Active Substance: ETONOGESTREL
     Dosage: DOSE/FREQUENCY 3 YEARS , INSERTED IN LEFT ARM
     Route: 059
     Dates: start: 20150204

REACTIONS (3)
  - Implant site erythema [Unknown]
  - Implant site warmth [Unknown]
  - Implant site pain [Unknown]

NARRATIVE: CASE EVENT DATE: 20150204
